FAERS Safety Report 7341727-1 (Version None)
Quarter: 2011Q1

REPORT INFORMATION
  Report Type: 
  Country: None (occurrence: None)
  Receive Date: 20110309
  Receipt Date: 20101130
  Transmission Date: 20110831
  Serious: Yes (Death, Hospitalization, Other)
  Sender: FDA-Public Use
  Company Number: US-BAYER-200940700NA

PATIENT
  Sex: Female
  Weight: 120.18 kg

DRUGS (11)
  1. TRASYLOL [Suspect]
     Indication: MITRAL VALVE REPLACEMENT
     Dosage: UNK
     Route: 042
     Dates: start: 20061101
  2. PHENERGAN [Concomitant]
     Dosage: AS NEEDED
  3. AMITRIPTYLINE [Concomitant]
     Dosage: 25 MG DAILY
     Route: 048
  4. PERCOCET [Concomitant]
     Dosage: AS NEEDED
  5. CALCIUM ACETATE [Concomitant]
     Dosage: 667 MG THREE TIMES A DAY
  6. ASPIRIN [Concomitant]
     Dosage: 81 MG DAILY
     Route: 048
  7. ANCEF [Concomitant]
     Dosage: 2 G EVERY NIGHT
     Route: 042
  8. REGLAN [Concomitant]
     Dosage: 5 MG
     Route: 048
  9. PROTONIX [Concomitant]
     Dosage: 40 MG
     Route: 048
  10. ESTROGENIC SUBSTANCE [Concomitant]
     Dosage: 0.3 MG DAILY
     Route: 048
  11. PROCRIT [Concomitant]
     Dosage: 20 000 IU, MO, MI, FR
     Route: 058

REACTIONS (14)
  - RENAL INJURY [None]
  - PAIN [None]
  - RENAL IMPAIRMENT [None]
  - DEATH [None]
  - EMOTIONAL DISTRESS [None]
  - FEAR [None]
  - ANHEDONIA [None]
  - MULTI-ORGAN FAILURE [None]
  - RENAL FAILURE [None]
  - INJURY [None]
  - UNEVALUABLE EVENT [None]
  - MENTAL DISORDER [None]
  - ANXIETY [None]
  - STRESS [None]
